FAERS Safety Report 7502613-7 (Version None)
Quarter: 2011Q2

REPORT INFORMATION
  Report Type: 
  Country: None (occurrence: None)
  Receive Date: 20110525
  Receipt Date: 20110510
  Transmission Date: 20111010
  Serious: Yes (Hospitalization, Other)
  Sender: FDA-Public Use
  Company Number: PHHY2011FR41047

PATIENT
  Sex: Male

DRUGS (9)
  1. ATORVASTATIN [Concomitant]
     Indication: BLOOD CHOLESTEROL
     Dosage: 1 DF, QD
  2. CITALOPRAM HYDROBROMIDE [Concomitant]
     Indication: DEPRESSION
     Dosage: 20 MG, QD
  3. RASILEZ [Suspect]
     Indication: HYPERTENSION
     Dosage: 300 MG, DAILY
     Dates: start: 20110204, end: 20110414
  4. OMEPRAZOLE [Concomitant]
     Dosage: 20 MG, QD
  5. ALUMINUM HYDROXIDE AND MAGNESIUM TRISILICATE [Concomitant]
     Indication: DIARRHOEA
     Dosage: 1 DF, TID
  6. CELIPROLOL [Concomitant]
     Indication: HYPERTENSION
     Dosage: 200 MG, QD
  7. LANSOPRAZOLE [Concomitant]
     Indication: ABDOMINAL PAIN UPPER
     Dosage: 15 MG, QD
  8. VOGALENE [Concomitant]
     Indication: NAUSEA
     Dosage: 1 DF, TID, AS NEEDED
     Dates: start: 20110401
  9. CELIPROLOL [Concomitant]
     Dosage: 100 MG, QD

REACTIONS (16)
  - CAMPYLOBACTER GASTROENTERITIS [None]
  - BLOOD CREATINE INCREASED [None]
  - CHROMATURIA [None]
  - BLOOD URINE PRESENT [None]
  - ABDOMINAL PAIN UPPER [None]
  - ASTHENIA [None]
  - ANURIA [None]
  - HEADACHE [None]
  - DECREASED APPETITE [None]
  - DIARRHOEA [None]
  - MYALGIA [None]
  - DYSPEPSIA [None]
  - RENAL FAILURE ACUTE [None]
  - PROTEINURIA [None]
  - VOMITING [None]
  - THIRST [None]
